FAERS Safety Report 10226530 (Version 1)
Quarter: 2014Q2

REPORT INFORMATION
  Report Type: Spontaneous
  Country: US (occurrence: US)
  Receive Date: 20140609
  Receipt Date: 20140609
  Transmission Date: 20141212
  Serious: No
  Sender: FDA-Public Use
  Company Number: US-AMGEN INC.-USASP2013071278

PATIENT
  Age: 44 Year
  Sex: Male
  Weight: 240.36 kg

DRUGS (1)
  1. PROCRIT [Suspect]
     Indication: ANAEMIA
     Dosage: 1 MG/1 ML, QWK
     Route: 065
     Dates: start: 201305

REACTIONS (2)
  - Haemoglobin abnormal [Unknown]
  - Drug dose omission [Not Recovered/Not Resolved]
